FAERS Safety Report 12710281 (Version 2)
Quarter: 2017Q2

REPORT INFORMATION
  Report Type: Report from Study
  Country: CA (occurrence: CA)
  Receive Date: 20160902
  Receipt Date: 20170403
  Transmission Date: 20170830
  Serious: Yes (Hospitalization, Other)
  Sender: FDA-Public Use
  Company Number: CA-009507513-1608CAN015371

PATIENT
  Age: 54 Year
  Sex: Male

DRUGS (1)
  1. ZEPATIER [Suspect]
     Active Substance: ELBASVIR\GRAZOPREVIR
     Indication: HEPATITIS C
     Dosage: 100/50 MG, QD
     Route: 048
     Dates: start: 20160606

REACTIONS (3)
  - Pneumonia [Unknown]
  - Plasma cell myeloma [Unknown]
  - Drug dose omission [Unknown]

NARRATIVE: CASE EVENT DATE: 201607
